FAERS Safety Report 14755061 (Version 1)
Quarter: 2018Q2

REPORT INFORMATION
  Report Type: Report from Study
  Country: US (occurrence: US)
  Receive Date: 20180413
  Receipt Date: 20180413
  Transmission Date: 20180711
  Serious: Yes (Other)
  Sender: FDA-Public Use
  Company Number: US-ALEXION PHARMACEUTICALS INC.-A201804139

PATIENT
  Sex: Female

DRUGS (2)
  1. SOLIRIS [Suspect]
     Active Substance: ECULIZUMAB
     Indication: PAROXYSMAL NOCTURNAL HAEMOGLOBINURIA
     Dosage: UNK
     Route: 065
  2. SOLIRIS [Suspect]
     Active Substance: ECULIZUMAB
     Dosage: 900 MG, Q2W
     Route: 042

REACTIONS (8)
  - Face injury [Recovering/Resolving]
  - Fall [Recovering/Resolving]
  - Loss of consciousness [Recovered/Resolved]
  - Haemoglobin decreased [Recovered/Resolved]
  - Food craving [Not Recovered/Not Resolved]
  - Head injury [Recovering/Resolving]
  - Mouth injury [Recovering/Resolving]
  - Ligament sprain [Recovering/Resolving]

NARRATIVE: CASE EVENT DATE: 20180310
